FAERS Safety Report 15733706 (Version 8)
Quarter: 2019Q3

REPORT INFORMATION
  Report Type: Report from Study
  Country: CO (occurrence: CO)
  Receive Date: 20181218
  Receipt Date: 20190815
  Transmission Date: 20191004
  Serious: Yes (Hospitalization, Other)
  Sender: FDA-Public Use
  Company Number: CO-ASTELLAS-2018US053446

PATIENT
  Age: 31 Year
  Sex: Male
  Weight: 105 kg

DRUGS (2)
  1. TACROLIMUS. [Suspect]
     Active Substance: TACROLIMUS
     Dosage: 8 MG, ONCE DAILY (1 CAPSULE OF 5 MG AND 1 CAPSULE OF 3 MG)
     Route: 048
     Dates: start: 201812
  2. TACROLIMUS. [Suspect]
     Active Substance: TACROLIMUS
     Indication: RENAL TRANSPLANT
     Dosage: 7 MG, ONCE DAILY (1 CAPSULE OF 5 MG AND 2 CAPSULES OF 1 MG)
     Route: 048
     Dates: start: 20060811

REACTIONS (16)
  - Blood creatinine abnormal [Not Recovered/Not Resolved]
  - Influenza [Recovering/Resolving]
  - Drug hypersensitivity [Not Recovered/Not Resolved]
  - Product supply issue [Unknown]
  - Product dose omission [Unknown]
  - Perinephric abscess [Recovered/Resolved]
  - Kidney transplant rejection [Recovered/Resolved]
  - Cough [Recovered/Resolved]
  - Cough [Recovering/Resolving]
  - Helicobacter infection [Recovering/Resolving]
  - Blood creatinine increased [Not Recovered/Not Resolved]
  - Urinary tract stoma complication [Recovering/Resolving]
  - Influenza [Recovered/Resolved]
  - Blood creatinine increased [Recovered/Resolved]
  - Ureteric stenosis [Recovering/Resolving]
  - Ureteric stenosis [Recovering/Resolving]

NARRATIVE: CASE EVENT DATE: 2006
